FAERS Safety Report 5009997-2 (Version None)
Quarter: 2006Q2

REPORT INFORMATION
  Report Type: 
  Country: None (occurrence: None)
  Receive Date: 20060522
  Receipt Date: 20060510
  Transmission Date: 20061013
  Serious: No
  Sender: FDA-Public Use
  Company Number: RS006013-GB

PATIENT
  Sex: Male

DRUGS (1)
  1. RABEPRAZOLE SODIUM [Suspect]
     Indication: GASTRIC PH DECREASED
     Dosage: ORAL
     Route: 048
     Dates: start: 19980101

REACTIONS (6)
  - CARDIAC DISORDER [None]
  - CHEST PAIN [None]
  - COUGH [None]
  - DIARRHOEA [None]
  - RESPIRATORY DISORDER [None]
  - SEROTONIN SYNDROME [None]
